FAERS Safety Report 17061650 (Version 2)
Quarter: 2020Q1

REPORT INFORMATION
  Report Type: Other
  Country: US (occurrence: US)
  Receive Date: 20191121
  Receipt Date: 20200229
  Transmission Date: 20200409
  Serious: Yes (Hospitalization, Other)
  Sender: FDA-Public Use
  Company Number: US-AMAG PHARMACEUTICALS, INC.-AMAG201905085

PATIENT
  Age: 40 Year
  Sex: Female

DRUGS (2)
  1. NIFEDIPINE. [Concomitant]
     Active Substance: NIFEDIPINE
     Indication: PRODUCT USED FOR UNKNOWN INDICATION
     Dates: start: 20190726, end: 20190910
  2. MAKENA [Suspect]
     Active Substance: HYDROXYPROGESTERONE CAPROATE
     Indication: PREMATURE DELIVERY
     Route: 030
     Dates: start: 20190621, end: 20190904

REACTIONS (2)
  - Premature delivery [Recovered/Resolved]
  - Placenta praevia haemorrhage [Recovered/Resolved]

NARRATIVE: CASE EVENT DATE: 20190910
